FAERS Safety Report 7714022-6 (Version None)
Quarter: 2011Q3

REPORT INFORMATION
  Report Type: 
  Country: None (occurrence: None)
  Receive Date: 20110826
  Receipt Date: 20110812
  Transmission Date: 20111222
  Serious: Yes (Hospitalization)
  Sender: FDA-Public Use
  Company Number: HR-WATSON-2011-08224

PATIENT
  Age: 62 Year
  Sex: Male

DRUGS (2)
  1. AZITHROMYCIN [Suspect]
     Indication: UPPER RESPIRATORY TRACT INFECTION
     Dosage: 500 MG, DAILY X 3 DAYS
  2. TACROLIMUS [Suspect]
     Indication: HEPATIC ENZYME INCREASED
     Dosage: 0.15 MG/KG, IN 2 DIVIDED DOSES

REACTIONS (3)
  - VANISHING BILE DUCT SYNDROME [None]
  - HEPATIC ENZYME INCREASED [None]
  - STEVENS-JOHNSON SYNDROME [None]
